FAERS Safety Report 6128999-6 (Version None)
Quarter: 2009Q1

REPORT INFORMATION
  Report Type: 
  Country: None (occurrence: None)
  Receive Date: 20090324
  Receipt Date: 20090313
  Transmission Date: 20090719
  Serious: Yes (Other)
  Sender: FDA-Public Use
  Company Number: PHEH2009US02613

PATIENT
  Sex: Female

DRUGS (3)
  1. ZOMETA [Suspect]
     Indication: METASTASES TO BONE
     Dosage: UNK
     Dates: start: 20081219, end: 20081219
  2. ZOMETA [Suspect]
     Dosage: UNK
     Dates: start: 20090116, end: 20080116
  3. ZOMETA [Suspect]
     Dosage: UNK
     Dates: start: 20090213, end: 20080213

REACTIONS (7)
  - BONE PAIN [None]
  - EYE DISORDER [None]
  - INFLUENZA LIKE ILLNESS [None]
  - NAUSEA [None]
  - OEDEMA PERIPHERAL [None]
  - PAIN IN JAW [None]
  - PALPITATIONS [None]
